FAERS Safety Report 4942013-7 (Version None)
Quarter: 2006Q1

REPORT INFORMATION
  Report Type: 
  Country: None (occurrence: None)
  Receive Date: 20060313
  Receipt Date: 20050509
  Transmission Date: 20060701
  Serious: Yes (Other)
  Sender: FDA-Public Use
  Company Number: US-MERCK-0505USA01153

PATIENT
  Age: 50 Year
  Sex: Male
  Weight: 127 kg

DRUGS (5)
  1. VIOXX [Suspect]
     Indication: GOUT
     Route: 048
     Dates: start: 20020826, end: 20040103
  2. VIOXX [Suspect]
     Route: 048
     Dates: start: 20020826, end: 20040103
  3. VIOXX [Suspect]
     Indication: RHEUMATOID ARTHRITIS
     Route: 048
     Dates: start: 20020826, end: 20040103
  4. VIOXX [Suspect]
     Route: 048
     Dates: start: 20020826, end: 20040103
  5. ASPIRIN [Concomitant]
     Route: 065

REACTIONS (2)
  - CEREBROVASCULAR ACCIDENT [None]
  - DEPRESSION [None]
